FAERS Safety Report 5055643-1 (Version None)
Quarter: 2006Q3

REPORT INFORMATION
  Report Type: 
  Country: None (occurrence: None)
  Receive Date: 20060714
  Receipt Date: 20060627
  Transmission Date: 20061208
  Serious: Yes (Death, Hospitalization)
  Sender: FDA-Public Use
  Company Number: US200606002701

PATIENT
  Age: 81 Year
  Sex: Female

DRUGS (2)
  1. FORTEO [Suspect]
  2. FORTEO PEN (FORTEO PEN) [Concomitant]

REACTIONS (5)
  - CARDIOMYOPATHY [None]
  - HYPERCOAGULATION [None]
  - INTRACARDIAC THROMBUS [None]
  - THROMBOSIS [None]
  - UROSEPSIS [None]
